FAERS Safety Report 21156119 (Version 1)
Quarter: 2022Q3

REPORT INFORMATION
  Report Type: Spontaneous
  Country: US (occurrence: US)
  Receive Date: 20220801
  Receipt Date: 20220801
  Transmission Date: 20221027
  Serious: No
  Sender: FDA-Public Use
  Company Number: US-PFIZER INC-202201018052

PATIENT
  Age: 62 Year
  Sex: Female

DRUGS (10)
  1. PAXLOVID [Suspect]
     Active Substance: NIRMATRELVIR\RITONAVIR
     Indication: COVID-19 treatment
     Dosage: UNK
     Dates: start: 20220718, end: 20220723
  2. TESSALON [Concomitant]
     Active Substance: BENZONATATE
     Dosage: UNK
     Dates: start: 20220720
  3. LOPERAMIDE HYDROCHLORIDE [Concomitant]
     Active Substance: LOPERAMIDE HYDROCHLORIDE
     Dosage: UNK
     Dates: start: 20220502
  4. TOPROL XL [Concomitant]
     Active Substance: METOPROLOL SUCCINATE
     Dosage: UNK
     Dates: start: 20220509
  5. THYROID [Concomitant]
     Active Substance: LEVOTHYROXINE\LIOTHYRONINE
     Dosage: UNK
     Dates: start: 20220713
  6. THYROID [Concomitant]
     Active Substance: LEVOTHYROXINE\LIOTHYRONINE
     Dosage: UNK
     Dates: start: 20220713
  7. TRIAMTERENE [Concomitant]
     Active Substance: TRIAMTERENE
     Dosage: UNK
     Route: 048
     Dates: start: 20220713
  8. ENTOCORT EC [Concomitant]
     Active Substance: BUDESONIDE
     Dosage: UNK
     Dates: start: 20220601
  9. LISINOPRIL [Concomitant]
     Active Substance: LISINOPRIL
     Dosage: UNK
     Dates: start: 20220601
  10. OMEPRAZOLE [Concomitant]
     Active Substance: OMEPRAZOLE
     Dosage: UNK
     Dates: start: 20220425

REACTIONS (2)
  - COVID-19 [Not Recovered/Not Resolved]
  - Disease recurrence [Not Recovered/Not Resolved]

NARRATIVE: CASE EVENT DATE: 20220727
